FAERS Safety Report 10897269 (Version 1)
Quarter: 2015Q1

REPORT INFORMATION
  Report Type: Spontaneous
  Country: US (occurrence: None)
  Receive Date: 20150302
  Receipt Date: 20150302
  Transmission Date: 20150721
  Serious: No
  Sender: FDA-Public Use
  Company Number: None

PATIENT
  Age: 46 Year
  Sex: Female
  Weight: 68.04 kg

DRUGS (1)
  1. NEOSPORIN LIP HEALTH OVERNIGHT RENEWAL THERAPY [Suspect]
     Active Substance: PETROLATUM
     Indication: CHAPPED LIPS
     Dates: start: 20150225, end: 20150226

REACTIONS (5)
  - Lip swelling [None]
  - Lip pain [None]
  - Reaction to drug excipients [None]
  - Chapped lips [None]
  - Condition aggravated [None]

NARRATIVE: CASE EVENT DATE: 20150226
